FAERS Safety Report 8117989-X (Version None)
Quarter: 2012Q1

REPORT INFORMATION
  Report Type: 
  Country: None (occurrence: None)
  Receive Date: 20120201
  Receipt Date: 20110729
  Transmission Date: 20120608
  Serious: Yes (Hospitalization)
  Sender: FDA-Public Use
  Company Number: 2011003994

PATIENT
  Age: 67 Year
  Sex: Female

DRUGS (5)
  1. OXYCONTIN [Concomitant]
  2. ERYTHROMYCIN [Suspect]
     Indication: TOOTH INFECTION
     Dosage: 250 MG
     Dates: start: 20100529, end: 20100531
  3. AMITRIPTYLINE HCL [Suspect]
     Indication: PRODUCT USED FOR UNKNOWN INDICATION
     Dosage: UNK
  4. ACETAMINOPHEN [Concomitant]
  5. GABAPENTIN [Concomitant]

REACTIONS (3)
  - DRUG INTERACTION [None]
  - LONG QT SYNDROME [None]
  - SYNCOPE [None]
